FAERS Safety Report 7703789-9 (Version None)
Quarter: 2011Q3

REPORT INFORMATION
  Report Type: 
  Country: None (occurrence: None)
  Receive Date: 20110823
  Receipt Date: 20110817
  Transmission Date: 20111222
  Serious: Yes (Hospitalization)
  Sender: FDA-Public Use
  Company Number: JP-ROCHE-699514

PATIENT
  Sex: Male
  Weight: 30 kg

DRUGS (3)
  1. ROCEPHIN [Suspect]
     Route: 041
     Dates: start: 20090218
  2. TPN ELECTROLYTES IN PLASTIC CONTAINER [Concomitant]
     Route: 042
     Dates: start: 20090217, end: 20090220
  3. ROCEPHIN [Suspect]
     Indication: INFECTION
     Route: 041
     Dates: start: 20090212, end: 20090217

REACTIONS (8)
  - BILE DUCT STONE [None]
  - HEPATIC FUNCTION ABNORMAL [None]
  - JAUNDICE [None]
  - BLOOD ALKALINE PHOSPHATASE INCREASED [None]
  - ASPARTATE AMINOTRANSFERASE INCREASED [None]
  - GAMMA-GLUTAMYLTRANSFERASE INCREASED [None]
  - ALANINE AMINOTRANSFERASE INCREASED [None]
  - PANCREATITIS ACUTE [None]
